FAERS Safety Report 9445806 (Version 1)
Quarter: 2013Q3

REPORT INFORMATION
  Report Type: Spontaneous
  Country: JP (occurrence: JP)
  Receive Date: 20130807
  Receipt Date: 20130807
  Transmission Date: 20140515
  Serious: Yes (Hospitalization)
  Sender: FDA-Public Use
  Company Number: JP-PFIZER INC-2013223464

PATIENT
  Sex: 0

DRUGS (1)
  1. ZYVOX [Suspect]
     Route: 048

REACTIONS (1)
  - International normalised ratio increased [Unknown]
